FAERS Safety Report 17954642 (Version 3)
Quarter: 2020Q3

REPORT INFORMATION
  Report Type: Spontaneous
  Country: US (occurrence: US)
  Receive Date: 20200629
  Receipt Date: 20200902
  Transmission Date: 20201103
  Serious: No
  Sender: FDA-Public Use
  Company Number: US-ASTRAZENECA-2020SE81283

PATIENT
  Age: 22058 Day
  Sex: Female
  Weight: 73.4 kg

DRUGS (2)
  1. BYETTA [Suspect]
     Active Substance: EXENATIDE
     Indication: DIABETES MELLITUS
     Route: 065
  2. BYDUREON BCISE [Suspect]
     Active Substance: EXENATIDE
     Indication: DIABETES MELLITUS
     Route: 058

REACTIONS (16)
  - Blood glucose fluctuation [Unknown]
  - Injection site warmth [Unknown]
  - Abdominal discomfort [Unknown]
  - Injection site bruising [Unknown]
  - Pain in extremity [Unknown]
  - Injection site nodule [Unknown]
  - Injection site mass [Unknown]
  - Hyperhidrosis [Unknown]
  - Injection site pain [Unknown]
  - Weight decreased [Unknown]
  - Intentional device misuse [Unknown]
  - Device leakage [Unknown]
  - Injection site haemorrhage [Unknown]
  - Drug delivery system issue [Unknown]
  - Diarrhoea [Unknown]
  - Headache [Unknown]

NARRATIVE: CASE EVENT DATE: 20200622
